FAERS Safety Report 9773361 (Version 2)
Quarter: 2013Q4

REPORT INFORMATION
  Report Type: Spontaneous
  Country: US (occurrence: US)
  Receive Date: 20131219
  Receipt Date: 20131230
  Transmission Date: 20140711
  Serious: Yes (Hospitalization)
  Sender: FDA-Public Use
  Company Number: US-B.I. PHARMACEUTICALS,INC./RIDGEFIELD-2013-BI-42289BP

PATIENT
  Age: 58 Year
  Sex: Female
  Weight: 82 kg

DRUGS (2)
  1. SPIRIVA [Suspect]
     Indication: BRONCHITIS CHRONIC
     Dosage: 18 MCG
     Route: 055
     Dates: start: 201204
  2. HIZENTRA [Concomitant]
     Indication: IMMUNODEFICIENCY COMMON VARIABLE
     Dosage: FORMULATION:(SUBCUTANEOUS)
     Route: 058
     Dates: start: 201209

REACTIONS (4)
  - Pyelonephritis [Recovered/Resolved]
  - Intestinal obstruction [Recovered/Resolved]
  - Product quality issue [Recovered/Resolved]
  - Product quality issue [Recovered/Resolved]
